FAERS Safety Report 9308695 (Version 1)
Quarter: 2013Q2

REPORT INFORMATION
  Report Type: Spontaneous
  Country: US (occurrence: US)
  Receive Date: 20130524
  Receipt Date: 20130524
  Transmission Date: 20140414
  Serious: No
  Sender: FDA-Public Use
  Company Number: US-NOVEN-13US006561

PATIENT
  Age: 49 Year
  Sex: Female

DRUGS (1)
  1. MINIVELLE [Suspect]
     Indication: HOT FLUSH
     Dosage: UNK
     Route: 062
     Dates: end: 2013

REACTIONS (2)
  - Application site discolouration [Recovered/Resolved]
  - Product quality issue [Recovered/Resolved]
